FAERS Safety Report 19909945 (Version 2)
Quarter: 2021Q4

REPORT INFORMATION
  Report Type: Spontaneous
  Country: CH (occurrence: CH)
  Receive Date: 20211003
  Receipt Date: 20211004
  Transmission Date: 20220303
  Serious: Yes (Death, Other)
  Sender: FDA-Public Use
  Company Number: NVSC2020CH354036

PATIENT
  Sex: Female

DRUGS (2)
  1. MEKINIST [Suspect]
     Active Substance: TRAMETINIB DIMETHYL SULFOXIDE
     Indication: Choroid melanoma
     Dosage: 1 MG, QD
     Route: 048
     Dates: start: 20200814, end: 20210303
  2. OLAPARIB [Concomitant]
     Active Substance: OLAPARIB
     Indication: Choroid melanoma
     Dosage: 300 MG (2X/ JOUR)
     Route: 048
     Dates: start: 20200814, end: 20210303

REACTIONS (5)
  - Death [Fatal]
  - Choroid melanoma [Unknown]
  - Malignant neoplasm progression [Unknown]
  - Mucosal inflammation [Not Recovered/Not Resolved]
  - Mouth ulceration [Recovering/Resolving]

NARRATIVE: CASE EVENT DATE: 20201112
